FAERS Safety Report 14162489 (Version 1)
Quarter: 2017Q4

REPORT INFORMATION
  Report Type: Spontaneous
  Country: US (occurrence: US)
  Receive Date: 20171106
  Receipt Date: 20171106
  Transmission Date: 20180321
  Serious: Yes (Other)
  Sender: FDA-Public Use
  Company Number: US-PFIZER INC-2017472971

PATIENT
  Age: 74 Year
  Sex: Female
  Weight: 73 kg

DRUGS (1)
  1. COLESTID [Suspect]
     Active Substance: COLESTIPOL HYDROCHLORIDE
     Indication: HEPATIC SEQUESTRATION
     Dosage: 3 G, 1X/DAY
     Route: 048
     Dates: start: 201707, end: 2017

REACTIONS (7)
  - Dysphagia [Not Recovered/Not Resolved]
  - Product size issue [Not Recovered/Not Resolved]
  - Throat irritation [Not Recovered/Not Resolved]
  - Product use complaint [Not Recovered/Not Resolved]
  - Product use in unapproved indication [Unknown]
  - Atrial fibrillation [Not Recovered/Not Resolved]
  - Dysphonia [Not Recovered/Not Resolved]

NARRATIVE: CASE EVENT DATE: 201707
